FAERS Safety Report 24869966 (Version 1)
Quarter: 2025Q1

REPORT INFORMATION
  Report Type: Report from Study
  Country: CA (occurrence: CA)
  Receive Date: 20250121
  Receipt Date: 20250121
  Transmission Date: 20250409
  Serious: Yes (Other)
  Sender: OTSUKA
  Company Number: CA-OTSUKA-2025_001209

PATIENT
  Age: 54 Year
  Sex: Female

DRUGS (2)
  1. TOLVAPTAN [Suspect]
     Active Substance: TOLVAPTAN
     Indication: Congenital cystic kidney disease
     Dosage: 90 MG, QD
     Route: 048
     Dates: start: 20240415, end: 20241213
  2. TOLVAPTAN [Suspect]
     Active Substance: TOLVAPTAN
     Route: 065
     Dates: start: 20241220

REACTIONS (2)
  - Ovarian cyst [Unknown]
  - Oophorectomy [Unknown]

NARRATIVE: CASE EVENT DATE: 20241201
